FAERS Safety Report 5602490-5 (Version None)
Quarter: 2008Q1

REPORT INFORMATION
  Report Type: 
  Country: None (occurrence: None)
  Receive Date: 20080125
  Receipt Date: 20080118
  Transmission Date: 20080703
  Serious: Yes (Other)
  Sender: FDA-Public Use
  Company Number: A0700285A

PATIENT
  Age: 39 Year
  Sex: Female
  Weight: 60.5 kg

DRUGS (8)
  1. ONDANSETRON [Suspect]
     Indication: PROPHYLAXIS OF NAUSEA AND VOMITING
     Route: 065
  2. FLUOROURACIL [Concomitant]
  3. LEUCOVORIN CALCIUM [Concomitant]
  4. IRINOTECAN [Concomitant]
  5. PEPCID [Concomitant]
  6. KYTRIL [Concomitant]
  7. DEXAMETHASONE TAB [Concomitant]
  8. OXALIPLATIN [Concomitant]

REACTIONS (3)
  - LACTIC ACIDOSIS [None]
  - MUSCLE SPASMS [None]
  - MYALGIA [None]
